FAERS Safety Report 4943053-4 (Version None)
Quarter: 2006Q1

REPORT INFORMATION
  Report Type: 
  Country: None (occurrence: None)
  Receive Date: 20060309
  Receipt Date: 20060302
  Transmission Date: 20060701
  Serious: Yes (Death)
  Sender: FDA-Public Use
  Company Number: B0414569A

PATIENT

DRUGS (1)
  1. ALKERAN [Suspect]
     Indication: POEMS SYNDROME
     Dosage: SEE DOSAGE TEXT/ORAL
     Route: 048

REACTIONS (3)
  - ANAEMIA [None]
  - CARDIAC FAILURE ACUTE [None]
  - MYELODYSPLASTIC SYNDROME [None]
